FAERS Safety Report 4621345-6 (Version None)
Quarter: 2005Q1

REPORT INFORMATION
  Report Type: 
  Country: None (occurrence: None)
  Receive Date: 20050324
  Receipt Date: 20050324
  Transmission Date: 20050727
  Serious: Yes (Hospitalization)
  Sender: FDA-Public Use
  Company Number: None

PATIENT
  Age: 58 Year
  Sex: Male

DRUGS (1)
  1. ADDERALL 10 [Suspect]
     Indication: ATTENTION DEFICIT/HYPERACTIVITY DISORDER

REACTIONS (7)
  - BUNDLE BRANCH BLOCK LEFT [None]
  - CYANOSIS [None]
  - DYSPNOEA [None]
  - EXERCISE CAPACITY DECREASED [None]
  - FATIGUE [None]
  - NASOPHARYNGITIS [None]
  - OEDEMA PERIPHERAL [None]
